FAERS Safety Report 4938695-6 (Version None)
Quarter: 2006Q1

REPORT INFORMATION
  Report Type: 
  Country: None (occurrence: None)
  Receive Date: 20060113
  Receipt Date: 20050620
  Transmission Date: 20060701
  Serious: Yes (Other)
  Sender: FDA-Public Use
  Company Number: HQWYE804215OCT04

PATIENT
  Age: 69 Year
  Sex: Female
  Weight: 99.88 kg

DRUGS (6)
  1. PREMPRO [Suspect]
     Indication: HORMONE REPLACEMENT THERAPY
     Dosage: ORAL
     Route: 048
     Dates: start: 19960101
  2. PREMPRO [Suspect]
     Indication: OSTEOPOROSIS
     Dosage: ORAL
     Route: 048
     Dates: start: 19960101
  3. PREMPRO [Suspect]
     Indication: PROPHYLAXIS
     Dosage: ORAL
     Route: 048
     Dates: start: 19960101
  4. CYCRIN [Suspect]
  5. MEDROXYPROGESTERONE [Suspect]
  6. PREMARIN [Suspect]

REACTIONS (1)
  - BREAST CANCER [None]
